FAERS Safety Report 18845648 (Version 1)
Quarter: 2021Q1

REPORT INFORMATION
  Report Type: Spontaneous
  Country: US (occurrence: US)
  Receive Date: 20210203
  Receipt Date: 20210203
  Transmission Date: 20210419
  Serious: No
  Sender: FDA-Public Use
  Company Number: None

PATIENT
  Age: 31 Year
  Sex: Female
  Weight: 56.7 kg

DRUGS (2)
  1. ROCEPHIN [Suspect]
     Active Substance: CEFTRIAXONE SODIUM
     Indication: GONORRHOEA
     Dosage: ?          QUANTITY:500 MG MILLIGRAM(S);?
     Route: 042
     Dates: start: 20190916, end: 20190916
  2. ROCEPHIN [Suspect]
     Active Substance: CEFTRIAXONE SODIUM
     Indication: CERVICITIS
     Dosage: ?          QUANTITY:500 MG MILLIGRAM(S);?
     Route: 042
     Dates: start: 20190916, end: 20190916

REACTIONS (3)
  - Bladder pain [None]
  - Pollakiuria [None]
  - Cystitis interstitial [None]

NARRATIVE: CASE EVENT DATE: 20190916
